FAERS Safety Report 6455226-2 (Version None)
Quarter: 2009Q4

REPORT INFORMATION
  Report Type: 
  Country: None (occurrence: None)
  Receive Date: 20091119
  Receipt Date: 20091113
  Transmission Date: 20100525
  Serious: Yes (Hospitalization)
  Sender: FDA-Public Use
  Company Number: SP02649

PATIENT
  Age: 42 Year
  Sex: Male
  Weight: 69.4003 kg

DRUGS (8)
  1. XIFAXAN [Suspect]
     Indication: CROHN'S DISEASE
     Dosage: 600 MG (200 MG, 3 IN 1 D), ORAL
     Route: 048
  2. REMICADE [Suspect]
     Indication: CROHN'S DISEASE
     Dosage: (5 MG/KG), INTRAVENOUS
     Route: 042
     Dates: start: 20030822
  3. CIMZIA [Suspect]
     Indication: CROHN'S DISEASE
     Dosage: 14.2857 MG (400 MG, 1 IN 4 WK)
     Dates: start: 20080806
  4. NEXIUM [Suspect]
     Dosage: 40 MG (40 MG, 1 IN 1D)
  5. QUESTRAN [Suspect]
     Dosage: (2 IN 1 D)
  6. PEDIALYTE [Suspect]
  7. IMODIUM [Suspect]
     Indication: CROHN'S DISEASE
  8. DIGESTIVE ADVANTAGE [Suspect]
     Indication: PROBIOTIC THERAPY

REACTIONS (5)
  - DEHYDRATION [None]
  - DIARRHOEA [None]
  - FATIGUE [None]
  - MUSCLE SPASMS [None]
  - RENAL FAILURE ACUTE [None]
